FAERS Safety Report 8366247-7 (Version None)
Quarter: 2012Q2

REPORT INFORMATION
  Report Type: 
  Country: None (occurrence: None)
  Receive Date: 20120517
  Receipt Date: 20120510
  Transmission Date: 20120825
  Serious: Yes (Other)
  Sender: FDA-Public Use
  Company Number: PHEH2012US009893

PATIENT
  Sex: Male

DRUGS (2)
  1. ASPIRIN [Concomitant]
     Dosage: 81 MG,  DAILY
     Route: 048
  2. DIOVAN [Suspect]
     Indication: HYPERTENSION
     Dosage: 80 MG, DAILY
     Route: 048

REACTIONS (1)
  - CEREBROVASCULAR ACCIDENT [None]
